FAERS Safety Report 8086477-1 (Version None)
Quarter: 2012Q1

REPORT INFORMATION
  Report Type: 
  Country: None (occurrence: None)
  Receive Date: 20120128
  Receipt Date: 20110608
  Transmission Date: 20120608
  Serious: No
  Sender: FDA-Public Use
  Company Number: US-ABBOTT-11P-163-0724007-00

PATIENT
  Sex: Female
  Weight: 80.812 kg

DRUGS (6)
  1. ALBUTEROL [Concomitant]
     Indication: ASTHMA
     Dosage: 2 PUFFS AS NEEDED
     Dates: start: 20060101
  2. HUMIRA [Suspect]
     Indication: PSORIASIS
     Dates: start: 20110301
  3. HUMIRA [Suspect]
     Indication: PSORIATIC ARTHROPATHY
  4. KAPIDEX [Concomitant]
     Indication: GASTROOESOPHAGEAL REFLUX DISEASE
     Dates: start: 20070101
  5. CITALOPRAM [Concomitant]
     Indication: INSOMNIA
     Dates: start: 20090101
  6. ASPIRIN [Concomitant]
     Indication: PRODUCT USED FOR UNKNOWN INDICATION
     Dosage: DAILY

REACTIONS (3)
  - ALOPECIA [None]
  - HEADACHE [None]
  - PSORIASIS [None]
